FAERS Safety Report 9395809 (Version 3)
Quarter: 2013Q3

REPORT INFORMATION
  Report Type: Spontaneous
  Country: US (occurrence: US)
  Receive Date: 20130711
  Receipt Date: 20130821
  Transmission Date: 20140515
  Serious: Yes (Hospitalization)
  Sender: FDA-Public Use
  Company Number: US-GLAXOSMITHKLINE-A1001469A

PATIENT
  Age: 60 Year
  Sex: Male
  Weight: 105.5 kg

DRUGS (1)
  1. AVANDIA [Suspect]
     Indication: DIABETES MELLITUS
     Route: 048
     Dates: start: 20060223, end: 20060919

REACTIONS (2)
  - Acute myocardial infarction [Unknown]
  - Cardiac operation [Unknown]
